FAERS Safety Report 21252797 (Version 7)
Quarter: 2023Q2

REPORT INFORMATION
  Report Type: Report from Study
  Country: NZ (occurrence: None)
  Receive Date: 20220825
  Receipt Date: 20230509
  Transmission Date: 20230722
  Serious: Yes (Hospitalization)
  Sender: FDA-Public Use
  Company Number: NZ-ROCHE-3123181

PATIENT
  Age: 68 Year
  Sex: Male
  Weight: 97.8 kg

DRUGS (29)
  1. ATEZOLIZUMAB [Suspect]
     Active Substance: ATEZOLIZUMAB
     Indication: Hepatocellular carcinoma
     Dosage: HE RECEIVED MOST RECENT DOSE OF STUDY DRUG 1200 MG PRIOR TO AE  ON 14/JUN/2022
     Route: 041
     Dates: start: 20211118
  2. BEVACIZUMAB [Suspect]
     Active Substance: BEVACIZUMAB
     Indication: Hepatocellular carcinoma
     Dosage: HE RECEIVED MOST RECENT DOSE OF STUDY DRUG 1436 MG PRIOR TO AE ON 14/JUN/2022
     Route: 042
     Dates: start: 20211118
  3. TIRAGOLUMAB [Suspect]
     Active Substance: TIRAGOLUMAB
     Indication: Hepatocellular carcinoma
     Dosage: HE RECEIVED MOST RECENT DOSE OF STUDY DRUG 600 MG PRIOR TO AE ON 14/JUN/2022
     Route: 042
     Dates: start: 20211118
  4. NADOLOL [Concomitant]
     Active Substance: NADOLOL
     Indication: Portal hypertension
     Dates: start: 2016
  5. NADOLOL [Concomitant]
     Active Substance: NADOLOL
     Dates: start: 20220705
  6. OMEPRAZOLE [Concomitant]
     Active Substance: OMEPRAZOLE
     Indication: Gastrooesophageal reflux disease
     Dates: start: 2016
  7. DERMOL (NEW ZEALAND) [Concomitant]
     Indication: Psoriasis
     Dates: start: 2011
  8. CALCIUM CHLORIDE\POTASSIUM CHLORIDE\SODIUM CHLORIDE\SODIUM LACTATE [Concomitant]
     Active Substance: CALCIUM CHLORIDE\POTASSIUM CHLORIDE\SODIUM CHLORIDE\SODIUM LACTATE
     Indication: Pulmonary sepsis
     Dates: start: 20220722
  9. HYDROCORTISONE [Concomitant]
     Active Substance: HYDROCORTISONE
     Indication: Pulmonary sepsis
     Route: 042
     Dates: start: 20220722, end: 20220722
  10. PIPERACILLIN SODIUM\TAZOBACTAM SODIUM [Concomitant]
     Active Substance: PIPERACILLIN SODIUM\TAZOBACTAM SODIUM
     Indication: Pulmonary sepsis
     Route: 042
     Dates: start: 20220722, end: 20220722
  11. BUTYLSCOPOLAMINE BROMIDE [Concomitant]
     Active Substance: BUTYLSCOPOLAMINE BROMIDE
     Route: 058
     Dates: start: 20220722, end: 20220722
  12. ENSTILAR [Concomitant]
     Active Substance: BETAMETHASONE DIPROPIONATE\CALCIPOTRIENE HYDRATE
     Indication: Psoriasis
     Dates: start: 20211112
  13. NORTRIPTYLINE [Concomitant]
     Active Substance: NORTRIPTYLINE
     Indication: Depression
     Route: 048
     Dates: start: 20220705, end: 20220705
  14. MORPHINE [Concomitant]
     Active Substance: MORPHINE
     Indication: Respiratory distress
     Dosage: DOSE: 10 M
     Route: 058
     Dates: start: 20220722, end: 20220722
  15. MORPHINE [Concomitant]
     Active Substance: MORPHINE
     Indication: Pain
     Dates: start: 20220705, end: 20220714
  16. MIDAZOLAM [Concomitant]
     Active Substance: MIDAZOLAM
     Indication: Respiratory distress
     Route: 058
     Dates: start: 20220722, end: 20220722
  17. SODIUM LACTATE [Concomitant]
     Active Substance: SODIUM LACTATE
     Route: 042
     Dates: start: 20220722, end: 20220722
  18. FERRO TABLETS [Concomitant]
     Indication: Iron deficiency
     Route: 048
     Dates: start: 20220705
  19. DERMOL (NEW ZEALAND) [Concomitant]
     Indication: Psoriasis
     Dates: start: 20220705
  20. LACTULOSE [Concomitant]
     Active Substance: LACTULOSE
     Route: 048
     Dates: start: 20220705
  21. UREA [Concomitant]
     Active Substance: UREA
     Indication: Psoriasis
     Dates: start: 20220706
  22. SODIUM CHLORIDE [Concomitant]
     Active Substance: SODIUM CHLORIDE
     Route: 042
     Dates: start: 20220708, end: 20220708
  23. COTRIMOXAZOLE [Concomitant]
     Active Substance: SULFAMETHOXAZOLE\TRIMETHOPRIM
     Route: 048
     Dates: start: 20220708
  24. DOCUSATE\SENNOSIDES [Concomitant]
     Active Substance: DOCUSATE\SENNOSIDES
     Route: 048
     Dates: start: 20220708
  25. ALBUTEROL [Concomitant]
     Active Substance: ALBUTEROL
     Route: 058
     Dates: start: 20220710
  26. ACETAMINOPHEN [Concomitant]
     Active Substance: ACETAMINOPHEN
     Indication: Pain
     Route: 048
     Dates: start: 20220705, end: 20220710
  27. ONDANSETRON [Concomitant]
     Active Substance: ONDANSETRON
     Route: 042
     Dates: start: 20220708, end: 20220708
  28. BUTYLSCOPOLAMINE BROMIDE [Concomitant]
     Active Substance: BUTYLSCOPOLAMINE BROMIDE
     Indication: Pulmonary sepsis
     Route: 058
     Dates: start: 20220722, end: 20220722
  29. AUGMENTIN [Concomitant]
     Active Substance: AMOXICILLIN\CLAVULANATE POTASSIUM
     Indication: Skin ulcer
     Route: 042
     Dates: start: 20220704, end: 20220708

REACTIONS (1)
  - Vasculitis [Not Recovered/Not Resolved]

NARRATIVE: CASE EVENT DATE: 20220601
